FAERS Safety Report 25129388 (Version 1)
Quarter: 2025Q1

REPORT INFORMATION
  Report Type: Spontaneous
  Country: DE (occurrence: DE)
  Receive Date: 20250327
  Receipt Date: 20250327
  Transmission Date: 20250408
  Serious: Yes (Other)
  Sender: AUROBINDO
  Company Number: DE-EMB-M202305541-1

PATIENT
  Sex: Male
  Weight: 2.53 kg

DRUGS (15)
  1. QUETIAPINE [Suspect]
     Active Substance: QUETIAPINE
     Indication: Schizophrenia
     Dosage: 50 MILLIGRAM, ONCE A DAY (FILM TABLETS)
     Route: 064
     Dates: start: 202307, end: 202307
  2. QUETIAPINE [Suspect]
     Active Substance: QUETIAPINE
     Dosage: 100 MILLIGRAM, ONCE A DAY (FILM TABLETS)
     Route: 064
     Dates: start: 202307, end: 202307
  3. QUETIAPINE [Suspect]
     Active Substance: QUETIAPINE
     Dosage: 150 MILLIGRAM, ONCE A DAY (FILM TABLETS)
     Route: 064
     Dates: start: 202307, end: 202307
  4. QUETIAPINE [Suspect]
     Active Substance: QUETIAPINE
     Dosage: 200 MILLIGRAM, ONCE A DAY (FILM TABLETS)
     Route: 064
     Dates: start: 202307, end: 202307
  5. QUETIAPINE [Suspect]
     Active Substance: QUETIAPINE
     Dosage: 250 MILLIGRAM, ONCE A DAY (FILM TABLETS)
     Route: 064
     Dates: start: 202307, end: 202307
  6. QUETIAPINE [Suspect]
     Active Substance: QUETIAPINE
     Dosage: 300 MILLIGRAM, ONCE A DAY (FROM GW 12RETARD TABLETS)
     Route: 064
     Dates: start: 202307, end: 202308
  7. QUETIAPINE [Suspect]
     Active Substance: QUETIAPINE
     Dosage: 400 MILLIGRAM, ONCE A DAY (FROM GW 12RETARD TABLETS)
     Route: 064
     Dates: start: 202308, end: 202308
  8. QUETIAPINE [Suspect]
     Active Substance: QUETIAPINE
     Dosage: 450 MILLIGRAM, ONCE A DAY (RETARD TABLETS)
     Route: 064
     Dates: start: 202308, end: 202312
  9. QUETIAPINE [Suspect]
     Active Substance: QUETIAPINE
     Dosage: 400 MILLIGRAM, ONCE A DAY (RETARD TABLETS)
     Route: 064
     Dates: start: 202312, end: 202402
  10. INSULIN ASPART [Concomitant]
     Active Substance: INSULIN ASPART
     Indication: Gestational diabetes
     Dosage: 10 INTERNATIONAL UNIT, ONCE A DAY
     Route: 064
  11. PERTUSSIS VACCINE [Concomitant]
     Active Substance: PERTUSSIS VACCINE
     Indication: Immunisation
     Route: 064
  12. FOLIC ACID [Concomitant]
     Active Substance: FOLIC ACID
     Indication: Prophylaxis of neural tube defect
     Route: 064
  13. SERTRALINE [Concomitant]
     Active Substance: SERTRALINE HYDROCHLORIDE
     Indication: Schizophrenia
     Dosage: 50 MILLIGRAM, ONCE A DAY
     Route: 064
     Dates: start: 202305, end: 202307
  14. SERTRALINE [Concomitant]
     Active Substance: SERTRALINE HYDROCHLORIDE
     Dosage: 25 MILLIGRAM, ONCE A DAY
     Route: 065
     Dates: start: 202307, end: 202307
  15. CARIPRAZINE [Concomitant]
     Active Substance: CARIPRAZINE
     Indication: Schizophrenia
     Dosage: 4.5 MILLIGRAM, ONCE A DAY (STOPPED AFTER COUNSELING, INSTEAD STARTET WITH QUETIAPINE)
     Route: 064
     Dates: start: 202305, end: 20230703

REACTIONS (2)
  - Small for dates baby [Recovering/Resolving]
  - Foetal exposure during pregnancy [Unknown]
